FAERS Safety Report 14461496 (Version 2)
Quarter: 2018Q1

REPORT INFORMATION
  Report Type: Spontaneous
  Country: US (occurrence: US)
  Receive Date: 20180130
  Receipt Date: 20180309
  Transmission Date: 20180509
  Serious: Yes (Hospitalization)
  Sender: FDA-Public Use
  Company Number: US-TAIHO ONCOLOGY INC-EU-2018-00083

PATIENT
  Age: 69 Year
  Sex: Female
  Weight: 64.47 kg

DRUGS (34)
  1. LOVENOX [Concomitant]
     Active Substance: ENOXAPARIN SODIUM
     Indication: PULMONARY EMBOLISM
     Dosage: 1 MG/KG
     Route: 058
  2. COMPAZINE [Concomitant]
     Active Substance: PROCHLORPERAZINE MALEATE
     Dosage: PRN
     Route: 048
  3. LIPITOR [Concomitant]
     Active Substance: ATORVASTATIN CALCIUM
     Dosage: NI
  4. XANAX [Concomitant]
     Active Substance: ALPRAZOLAM
     Indication: ANXIETY
     Dosage: PRN
     Route: 048
  5. DECADRON [Concomitant]
     Active Substance: DEXAMETHASONE
     Dosage: FOR 30 DAYS
     Route: 048
  6. SYNTHROID [Concomitant]
     Active Substance: LEVOTHYROXINE SODIUM
     Dosage: AM ON EMPTY STOMACH
     Route: 048
  7. DULERA [Concomitant]
     Active Substance: FORMOTEROL FUMARATE DIHYDRATE\MOMETASONE FUROATE
     Dosage: 100-5 MCG/ACT
  8. MS CONTIN [Concomitant]
     Active Substance: MORPHINE SULFATE
     Dosage: EXTENDED RELEASE
     Route: 048
  9. LOPRESSOR [Concomitant]
     Active Substance: METOPROLOL TARTRATE
     Dosage: 50 MG AFTER BREAKFAST, 25 MG EVERY EVENING
     Route: 048
  10. ZYRTEC [Concomitant]
     Active Substance: CETIRIZINE HYDROCHLORIDE
     Dosage: NI
  11. VAGICAINE [Concomitant]
     Active Substance: BENZOCAINE\RESORCINOL
     Dosage: 20-3%, PRN
     Route: 067
  12. GARAMYCIN [Concomitant]
     Active Substance: GENTAMICIN SULFATE
     Dosage: PRN
     Route: 061
  13. K-DUR [Concomitant]
     Active Substance: POTASSIUM CHLORIDE
     Dosage: CR
     Route: 048
  14. LONSURF [Suspect]
     Active Substance: TIPIRACIL HYDROCHLORIDE\TRIFLURIDINE
     Indication: COLON CANCER METASTATIC
     Dosage: FINISHED 2 CYCLES
     Route: 048
     Dates: start: 20170705, end: 201708
  15. ZOFRAN [Concomitant]
     Active Substance: ONDANSETRON HYDROCHLORIDE
     Indication: NAUSEA
     Dosage: DISINTEGRATING TABLET, PRN
     Route: 048
  16. COMBIVENT RESPIMAT [Concomitant]
     Active Substance: ALBUTEROL SULFATE\IPRATROPIUM BROMIDE
     Dosage: PRN
  17. OXYGEN. [Concomitant]
     Active Substance: OXYGEN
     Dosage: 2L/MIN INTO THE LUNGS, CONTINUOUS
  18. DRAMAMINE [Concomitant]
     Active Substance: DIMENHYDRINATE
     Indication: MOTION SICKNESS
     Dosage: PRN
     Route: 048
  19. HUMIBID E [Concomitant]
     Dosage: PRN
     Route: 048
  20. PEPCID [Concomitant]
     Active Substance: FAMOTIDINE
     Route: 048
  21. NORCO [Concomitant]
     Active Substance: ACETAMINOPHEN\HYDROCODONE BITARTRATE
     Dosage: 5-325 MG, PRN
     Route: 048
  22. MAGIC MOUTHWASH [Concomitant]
     Active Substance: DIPHENHYDRAMINE HYDROCHLORIDE\LIDOCAINE HYDROCHLORIDE\NYSTATIN
     Dosage: SWISH AND SPIT, PRN
     Route: 048
  23. ZANTAC [Concomitant]
     Active Substance: RANITIDINE HYDROCHLORIDE
     Dosage: NIGHTLY
     Route: 048
  24. ZOLOFT [Concomitant]
     Active Substance: SERTRALINE HYDROCHLORIDE
     Route: 048
  25. LOMOTIL [Concomitant]
     Active Substance: ATROPINE SULFATE\DIPHENOXYLATE HYDROCHLORIDE
     Indication: DIARRHOEA
     Dosage: 2.5-0.025 MG, PRN
     Route: 048
     Dates: end: 201708
  26. ZINC. [Concomitant]
     Active Substance: ZINC
     Route: 048
  27. PRILOSEC [Concomitant]
     Active Substance: OMEPRAZOLE MAGNESIUM
     Dosage: QAM
     Route: 048
  28. FLUCONAZOLE. [Concomitant]
     Active Substance: FLUCONAZOLE
     Dosage: NI
  29. ADVAIR DISKUS [Concomitant]
     Active Substance: FLUTICASONE PROPIONATE\SALMETEROL XINAFOATE
     Dosage: 250-50 MCG - 1 PUFF
  30. MORPHINE [Concomitant]
     Active Substance: MORPHINE
     Dosage: 20 MG/ML, CONCENTRATED SOLUTION, PRN
     Route: 048
  31. TUMS [Concomitant]
     Active Substance: CALCIUM CARBONATE
     Indication: DYSPEPSIA
     Dosage: PRN
     Route: 048
  32. METRONIDAZOLE. [Concomitant]
     Active Substance: METRONIDAZOLE
     Dosage: NI
  33. DULCOLAX NOS [Concomitant]
     Active Substance: BISACODYL OR DOCUSATE SODIUM
     Route: 054
  34. DOCUSATE/SENNA ALEXANDRINA [Concomitant]
     Dosage: 8.6-50 MG, NIGHTLY
     Route: 048

REACTIONS (15)
  - Performance status decreased [Unknown]
  - Carcinoembryonic antigen increased [Unknown]
  - Anaemia [Recovering/Resolving]
  - Neutropenia [Recovered/Resolved]
  - Disease progression [Unknown]
  - Vomiting [Unknown]
  - Fatigue [Unknown]
  - Malignant ascites [Unknown]
  - Atelectasis [Unknown]
  - Confusional state [Unknown]
  - Constipation [Unknown]
  - Abdominal distension [Unknown]
  - Abdominal pain [Unknown]
  - Abdominal discomfort [Unknown]
  - Pleural effusion [Unknown]

NARRATIVE: CASE EVENT DATE: 2017
